FAERS Safety Report 15403536 (Version 1)
Quarter: 2018Q3

REPORT INFORMATION
  Report Type: Spontaneous
  Country: FR (occurrence: FR)
  Receive Date: 20180919
  Receipt Date: 20180919
  Transmission Date: 20181010
  Serious: Yes (Other)
  Sender: FDA-Public Use
  Company Number: FR-GILEAD-2018-0336511

PATIENT
  Sex: Female

DRUGS (14)
  1. OLIVENITE [Concomitant]
  2. HYOSCIAMUS [Concomitant]
  3. FRAGARIA VESCA FOL. / VITIS VINIFERA FOL. [Concomitant]
  4. FERRUM MET /HYPERICUM PERFOR /LEVICO / PRUNUS SPO [Concomitant]
  5. CINNABARIS /IRON PYRITE [Concomitant]
  6. ARGENTUM NIT. /BELLADONNA /SILICEA [Concomitant]
  7. CHELIDONIUM /CURCUMA / TARAXACUM STANNO CULTUM [Concomitant]
  8. HARVONI [Suspect]
     Active Substance: LEDIPASVIR\SOFOSBUVIR
     Indication: HEPATIC CIRRHOSIS
  9. AVENA SATIVA / COFFEA TOSTA /HUMULUS LUPULUS /PASSIFLORA INCAR/VALERIA [Concomitant]
  10. HARVONI [Suspect]
     Active Substance: LEDIPASVIR\SOFOSBUVIR
     Indication: CHRONIC HEPATITIS C
     Dosage: UNK
     Route: 065
  11. SOLANIUM LYCOPERSICUM [Concomitant]
  12. FERMENTED VISCUM ALBUM QUERCUS [Concomitant]
  13. BERBERIS FRUCTUS [Concomitant]
  14. SEPIA [Concomitant]

REACTIONS (2)
  - Treatment failure [Unknown]
  - Genotype drug resistance test [Unknown]

NARRATIVE: CASE EVENT DATE: 2015
